FAERS Safety Report 9995944 (Version 2)
Quarter: 2015Q1

REPORT INFORMATION
  Report Type: Spontaneous
  Country: US (occurrence: US)
  Receive Date: 20140311
  Receipt Date: 20150209
  Transmission Date: 20150721
  Serious: Yes (Hospitalization)
  Sender: FDA-Public Use
  Company Number: US-BAYER-2014-034987

PATIENT
  Age: 44 Year
  Sex: Female
  Weight: 65.76 kg

DRUGS (5)
  1. GIANVI [Suspect]
     Active Substance: DROSPIRENONE\ETHINYL ESTRADIOL
     Dosage: UNK
     Dates: start: 20040119, end: 20061003
  2. YASMIN [Suspect]
     Active Substance: DROSPIRENONE\ETHINYL ESTRADIOL
     Dosage: UNK
     Dates: start: 20040119, end: 20061003
  3. YAZ [Suspect]
     Active Substance: DROSPIRENONE\ETHINYL ESTRADIOL
     Dosage: UNK
     Dates: start: 20040119, end: 20061003
  4. LEXAPRO [Concomitant]
     Active Substance: ESCITALOPRAM OXALATE
     Dosage: 5 MG, LONG TERM USE
  5. OCELLA [Suspect]
     Active Substance: DROSPIRENONE\ETHINYL ESTRADIOL
     Dosage: UNK
     Dates: start: 20040119, end: 20061003

REACTIONS (9)
  - Psychological trauma [None]
  - Basal ganglia stroke [None]
  - Injury [None]
  - Anxiety [None]
  - Anhedonia [None]
  - Pain [None]
  - Emotional distress [None]
  - Fear of disease [None]
  - Cerebral infarction [None]

NARRATIVE: CASE EVENT DATE: 20061003
